FAERS Safety Report 25673166 (Version 1)
Quarter: 2025Q3

REPORT INFORMATION
  Report Type: Spontaneous
  Country: EU (occurrence: EU)
  Receive Date: 20250813
  Receipt Date: 20250813
  Transmission Date: 20251021
  Serious: Yes (Hospitalization, Other)
  Sender: CELLTRION
  Company Number: EU-AMGEN-DEUSP2025112055

PATIENT

DRUGS (5)
  1. BEVACIZUMAB [Suspect]
     Active Substance: BEVACIZUMAB
     Indication: Colorectal adenocarcinoma
     Route: 065
  2. LEUCOVORIN [Concomitant]
     Active Substance: LEUCOVORIN\LEUCOVORIN CALCIUM
  3. FLUOROURACIL [Concomitant]
     Active Substance: FLUOROURACIL
  4. IRINOTECAN [Concomitant]
     Active Substance: IRINOTECAN
  5. FLUOROURACIL\LEUCOVORIN CALCIUM\OXALIPLATIN [Concomitant]
     Active Substance: FLUOROURACIL\LEUCOVORIN CALCIUM\OXALIPLATIN

REACTIONS (13)
  - Tumour perforation [Recovered/Resolved]
  - Metastases to liver [Unknown]
  - Colorectal adenocarcinoma [Unknown]
  - Metastases to peritoneum [Unknown]
  - Gastrointestinal stoma complication [Unknown]
  - C-reactive protein increased [Unknown]
  - Mechanical ileus [Recovered/Resolved]
  - Large intestinal obstruction [Recovering/Resolving]
  - Abdominal wall abscess [Unknown]
  - Abdominal pain [Unknown]
  - Overflow diarrhoea [Unknown]
  - Abdominal adhesions [Unknown]
  - Vomiting [Recovered/Resolved]
